FAERS Safety Report 15002532 (Version 5)
Quarter: 2025Q3

REPORT INFORMATION
  Report Type: Spontaneous
  Country: EU (occurrence: EU)
  Receive Date: 20180612
  Receipt Date: 20250930
  Transmission Date: 20251021
  Serious: Yes (Hospitalization)
  Sender: NOVARTIS
  Company Number: PHHY2018GR019643

PATIENT
  Age: 74 Year
  Sex: Female

DRUGS (16)
  1. CARBAMAZEPINE [Suspect]
     Active Substance: CARBAMAZEPINE
     Indication: Back pain
     Dosage: 0.5 DF (200 MG), BID
     Route: 065
  2. CARBAMAZEPINE [Suspect]
     Active Substance: CARBAMAZEPINE
     Indication: Spinal pain
     Dosage: 200 MG, QD
     Route: 065
  3. CARBAMAZEPINE [Suspect]
     Active Substance: CARBAMAZEPINE
     Dosage: 200 MG, QID
     Route: 065
  4. CARBAMAZEPINE [Suspect]
     Active Substance: CARBAMAZEPINE
     Dosage: 200 MG, QID
     Route: 065
  5. ACETAMINOPHEN [Suspect]
     Active Substance: ACETAMINOPHEN
     Indication: Back pain
     Route: 042
  6. TRAMADOL HYDROCHLORIDE [Suspect]
     Active Substance: TRAMADOL HYDROCHLORIDE
     Indication: Pain
     Route: 062
  7. TRAMADOL HYDROCHLORIDE [Suspect]
     Active Substance: TRAMADOL HYDROCHLORIDE
     Indication: Spinal pain
     Route: 065
  8. TRAMADOL HYDROCHLORIDE [Suspect]
     Active Substance: TRAMADOL HYDROCHLORIDE
     Indication: Product used for unknown indication
  9. ACYCLOVIR [Suspect]
     Active Substance: ACYCLOVIR
     Indication: Pain
     Dosage: 750 MG, TID
     Route: 065
  10. ACYCLOVIR [Suspect]
     Active Substance: ACYCLOVIR
     Indication: Back pain
  11. PREGABALIN [Suspect]
     Active Substance: PREGABALIN
     Indication: Pain
     Dosage: 75 MG, BID
     Route: 065
  12. PREGABALIN [Suspect]
     Active Substance: PREGABALIN
     Indication: Back pain
     Dosage: 150 MG, BID
     Route: 065
  13. PREGABALIN [Suspect]
     Active Substance: PREGABALIN
     Indication: Spinal pain
  14. PREGABALIN [Suspect]
     Active Substance: PREGABALIN
     Indication: Back pain
     Dosage: 75 MG, QD
     Route: 065
  15. ACYCLOVIR [Concomitant]
     Active Substance: ACYCLOVIR
     Indication: Pain
     Dosage: 750 MG, TID
     Route: 065
  16. ACYCLOVIR [Concomitant]
     Active Substance: ACYCLOVIR
     Indication: Back pain

REACTIONS (4)
  - Pain [Recovering/Resolving]
  - Product use in unapproved indication [Recovering/Resolving]
  - Drug ineffective [Recovered/Resolved]
  - Therapeutic response decreased [Unknown]
